FAERS Safety Report 10342844 (Version 6)
Quarter: 2015Q2

REPORT INFORMATION
  Report Type: Report from Study
  Country: JP (occurrence: JP)
  Receive Date: 20140725
  Receipt Date: 20150610
  Transmission Date: 20150821
  Serious: Yes (Other)
  Sender: FDA-Public Use
  Company Number: JP-JNJFOC-20140713189

PATIENT
  Age: 67 Year
  Sex: Female
  Weight: 51 kg

DRUGS (13)
  1. EPADEL S [Concomitant]
     Active Substance: ETHYL ICOSAPENTATE\ICOSAPENT
     Indication: PROPHYLAXIS
     Route: 048
     Dates: start: 20140425, end: 20140522
  2. RIBAVIRIN. [Suspect]
     Active Substance: RIBAVIRIN
     Indication: CHRONIC HEPATITIS C
     Dosage: ALTERNATE DAY ADMINISTRATION
     Route: 048
     Dates: start: 20140424, end: 20140716
  3. ACINON [Concomitant]
     Active Substance: NIZATIDINE
     Indication: PROPHYLAXIS
     Route: 048
     Dates: start: 20140218, end: 20140702
  4. PEGASYS [Suspect]
     Active Substance: PEGINTERFERON ALFA-2A
     Indication: CHRONIC HEPATITIS C
     Route: 058
     Dates: start: 20140129, end: 20140515
  5. RIBAVIRIN. [Suspect]
     Active Substance: RIBAVIRIN
     Indication: CHRONIC HEPATITIS C
     Route: 048
     Dates: start: 20140213, end: 20140323
  6. PEGASYS [Suspect]
     Active Substance: PEGINTERFERON ALFA-2A
     Indication: CHRONIC HEPATITIS C
     Route: 058
     Dates: start: 20140529, end: 20140612
  7. PEGASYS [Suspect]
     Active Substance: PEGINTERFERON ALFA-2A
     Indication: CHRONIC HEPATITIS C
     Route: 058
     Dates: start: 20140619, end: 20140710
  8. EPADEL S [Concomitant]
     Active Substance: ETHYL ICOSAPENTATE\ICOSAPENT
     Indication: PROPHYLAXIS
     Route: 048
     Dates: start: 20140529, end: 20140716
  9. PEGASYS [Suspect]
     Active Substance: PEGINTERFERON ALFA-2A
     Indication: CHRONIC HEPATITIS C
     Route: 058
     Dates: start: 20140522, end: 20140522
  10. SOVRIAD [Suspect]
     Active Substance: SIMEPREVIR
     Indication: CHRONIC HEPATITIS C
     Route: 048
     Dates: start: 20140129, end: 20140423
  11. RIBAVIRIN. [Suspect]
     Active Substance: RIBAVIRIN
     Indication: CHRONIC HEPATITIS C
     Route: 048
     Dates: start: 20140327, end: 20140410
  12. RIBAVIRIN. [Suspect]
     Active Substance: RIBAVIRIN
     Indication: CHRONIC HEPATITIS C
     Route: 048
     Dates: start: 20140129, end: 20140212
  13. EPADEL S [Concomitant]
     Active Substance: ETHYL ICOSAPENTATE\ICOSAPENT
     Indication: PROPHYLAXIS
     Route: 048
     Dates: start: 20140129, end: 20140424

REACTIONS (8)
  - Insomnia [Recovering/Resolving]
  - Platelet count decreased [Recovered/Resolved]
  - Rash pruritic [Recovering/Resolving]
  - Gastritis [Recovering/Resolving]
  - Iron deficiency anaemia [Recovering/Resolving]
  - Xerosis [Recovering/Resolving]
  - White blood cell count decreased [Recovered/Resolved]
  - Pyrexia [Recovering/Resolving]

NARRATIVE: CASE EVENT DATE: 20140131
